FAERS Safety Report 5602084-1 (Version None)
Quarter: 2008Q1

REPORT INFORMATION
  Report Type: 
  Country: None (occurrence: None)
  Receive Date: 20080122
  Receipt Date: 20080107
  Transmission Date: 20080703
  Serious: Yes (Hospitalization)
  Sender: FDA-Public Use
  Company Number: 2008S1000264

PATIENT
  Age: 17 Year
  Sex: Male

DRUGS (14)
  1. ETOPOSIDE [Suspect]
     Indication: B-CELL LYMPHOMA
  2. CYCLOPHOSPHAMIDE [Suspect]
     Indication: B-CELL LYMPHOMA
  3. PREDNISONE TAB [Suspect]
     Indication: B-CELL LYMPHOMA
  4. DOXORUBUCIN (DOXORUBICIN) [Suspect]
     Indication: B-CELL LYMPHOMA
  5. METHOTREXATE [Suspect]
     Indication: B-CELL LYMPHOMA
  6. CYTARABINE [Suspect]
     Indication: B-CELL LYMPHOMA
  7. CASPOFUNGIN (CASPOFUNGIN) [Suspect]
     Indication: CANDIDIASIS
     Dosage: 70 MG;ONCE
  8. CEFTRIAXONE [Concomitant]
  9. VANCOMYCIN [Concomitant]
  10. AMIKACIN [Concomitant]
  11. IMIPENEM (IMIPENEM) [Concomitant]
  12. AMPHOTERICIN B [Concomitant]
  13. VORICONAZOLE (VORICONAZOLE) [Concomitant]
  14. CASPOFUNGIN (CASPOFUNGIN) [Concomitant]

REACTIONS (17)
  - ABDOMINAL PAIN UPPER [None]
  - APLASIA [None]
  - BILIRUBIN CONJUGATED INCREASED [None]
  - BLOOD ALKALINE PHOSPHATASE INCREASED [None]
  - BLOOD BILIRUBIN INCREASED [None]
  - CHOLESTASIS [None]
  - GAMMA-GLUTAMYLTRANSFERASE INCREASED [None]
  - GRANULOMATOUS LIVER DISEASE [None]
  - HEPATIC LESION [None]
  - HEPATIC NEOPLASM [None]
  - HEPATOSPLENIC CANDIDIASIS [None]
  - IMMUNE RECONSTITUTION SYNDROME [None]
  - NO THERAPEUTIC RESPONSE [None]
  - PYREXIA [None]
  - SPLEEN DISORDER [None]
  - SPLENIC LESION [None]
  - WHITE BLOOD CELL COUNT INCREASED [None]
